FAERS Safety Report 10239825 (Version 1)
Quarter: 2014Q2

REPORT INFORMATION
  Report Type: Spontaneous
  Country: US (occurrence: US)
  Receive Date: 20140616
  Receipt Date: 20140616
  Transmission Date: 20141212
  Serious: No
  Sender: FDA-Public Use
  Company Number: US-LUNDBECK-DKLU1093991

PATIENT
  Sex: Female

DRUGS (3)
  1. SABRIL (FOR ORAL SOLUTION) [Suspect]
     Indication: INFANTILE SPASMS
     Dates: start: 20130416, end: 20130628
  2. SABRIL (FOR ORAL SOLUTION) [Suspect]
     Dates: start: 20130917
  3. SABRIL (FOR ORAL SOLUTION) [Suspect]

REACTIONS (1)
  - Somnolence [Recovered/Resolved]
